FAERS Safety Report 25943325 (Version 1)
Quarter: 2025Q4

REPORT INFORMATION
  Report Type: Spontaneous
  Country: US (occurrence: None)
  Receive Date: 20251021
  Receipt Date: 20251021
  Transmission Date: 20260117
  Serious: No
  Sender: FDA-CTU
  Company Number: None

PATIENT
  Age: 45 Year
  Sex: Female
  Weight: 79.9 kg

DRUGS (1)
  1. PEMBROLIZUMAB [Suspect]
     Active Substance: PEMBROLIZUMAB
     Indication: Breast cancer
     Dates: end: 20250812

REACTIONS (5)
  - Tachycardia [None]
  - Hypothyroidism [None]
  - Thyroid mass [None]
  - Bundle branch block left [None]
  - Ejection fraction decreased [None]

NARRATIVE: CASE EVENT DATE: 20250930
